FAERS Safety Report 4576194-4 (Version None)
Quarter: 2005Q1

REPORT INFORMATION
  Report Type: 
  Country: None (occurrence: None)
  Receive Date: 20050204
  Receipt Date: 20050121
  Transmission Date: 20050727
  Serious: Yes (Hospitalization, Other)
  Sender: FDA-Public Use
  Company Number: 2004024003

PATIENT
  Age: 40 Year
  Sex: Female

DRUGS (11)
  1. UNASYN [Suspect]
     Indication: INFECTION PROPHYLAXIS
     Dosage: 6 GRAM (3 GRAM, 2 IN 1D), INTRAVENOUS
     Route: 042
     Dates: start: 20040102, end: 20040109
  2. MARZULENE S                      (LEVOGLUTAMIDE, SODIUM GUALENATE) [Suspect]
     Indication: ILL-DEFINED DISORDER
     Dosage: ORAL
     Route: 048
     Dates: start: 20040111, end: 20040101
  3. MEFENAMIC ACID [Suspect]
     Indication: ILL-DEFINED DISORDER
     Dosage: ORAL
     Route: 048
     Dates: start: 20040122, end: 20040101
  4. DIAZEPAM [Suspect]
     Indication: ILL-DEFINED DISORDER
     Dosage: ORAL
     Route: 048
     Dates: start: 20040111, end: 20040101
  5. GLUCOSE                     (GLUCOSE) [Concomitant]
  6. AMINOFULID [Concomitant]
  7. MAGNESIUM SULFATE [Concomitant]
  8. ZOLPIDEM TARTRATE [Concomitant]
  9. POTASSIUM CHLORIDE [Concomitant]
  10. SODIUM BICARBONATE                  (SODIUM BICARBONATE0 [Concomitant]
  11. CROTAMITON  (CROTAMITON) [Concomitant]

REACTIONS (10)
  - ABSCESS [None]
  - BLOOD CHLORIDE INCREASED [None]
  - GAMMA-GLUTAMYLTRANSFERASE INCREASED [None]
  - INCISION SITE COMPLICATION [None]
  - LYMPHOCYTE STIMULATION TEST POSITIVE [None]
  - MYCOPLASMA INFECTION [None]
  - PLATELET COUNT DECREASED [None]
  - POSTOPERATIVE INFECTION [None]
  - STAPHYLOCOCCAL INFECTION [None]
  - TOXIC EPIDERMAL NECROLYSIS [None]
